FAERS Safety Report 7900267-9 (Version None)
Quarter: 2011Q4

REPORT INFORMATION
  Report Type: 
  Country: None (occurrence: None)
  Receive Date: 20111108
  Receipt Date: 20111026
  Transmission Date: 20120403
  Serious: No
  Sender: FDA-Public Use
  Company Number: US-B.I. PHARMACEUTICALS,INC./RIDGEFIELD-2011-BP-25017BP

PATIENT
  Sex: Female

DRUGS (6)
  1. GAVISCON [Concomitant]
     Indication: DYSPEPSIA
     Dates: start: 20110901
  2. VYTORIN [Concomitant]
     Indication: BLOOD CHOLESTEROL INCREASED
     Dates: start: 20040101
  3. ZANTAC 150 [Suspect]
  4. NEXIUM [Concomitant]
     Indication: DYSPEPSIA
     Dates: start: 19950101
  5. ZANTAC 150 [Suspect]
     Indication: DYSPEPSIA
     Dosage: 150 MG
     Route: 048
     Dates: start: 20111022, end: 20111022
  6. DIOVAN [Concomitant]
     Indication: HYPERTENSION
     Dates: start: 20040101

REACTIONS (1)
  - DYSPEPSIA [None]
